FAERS Safety Report 5562578-4 (Version None)
Quarter: 2007Q4

REPORT INFORMATION
  Report Type: 
  Country: None (occurrence: None)
  Receive Date: 20071217
  Receipt Date: 20041201
  Transmission Date: 20080405
  Serious: Yes (Other)
  Sender: FDA-Public Use
  Company Number: IT-JNJFOC-20071101842

PATIENT
  Age: 42 Year
  Sex: Male
  Weight: 79 kg

DRUGS (1)
  1. HALOPERIDOL DECANOATE [Suspect]
     Indication: SCHIZOPHRENIA, PARANOID TYPE
     Dosage: 101-200MG
     Route: 050

REACTIONS (2)
  - EXTRAPYRAMIDAL DISORDER [None]
  - WEIGHT INCREASED [None]
